FAERS Safety Report 25545146 (Version 2)
Quarter: 2025Q3

REPORT INFORMATION
  Report Type: Spontaneous
  Country: JP (occurrence: JP)
  Receive Date: 20250711
  Receipt Date: 20250930
  Transmission Date: 20251021
  Serious: Yes (Disabling)
  Sender: GUERBET
  Company Number: JP-GUERBETG_JAPAN-JP-20250124

PATIENT
  Age: 82 Year
  Sex: Male

DRUGS (2)
  1. LIPIODOL [Suspect]
     Active Substance: ETHIODIZED OIL
     Indication: Therapeutic embolisation
     Dosage: INJECTED NBCA AND LIPIODOL (ETHIODIZED OIL) MIXED WITH AT A RATIO OF 1:2.
     Route: 013
     Dates: start: 20201102, end: 20201102
  2. UNSPECIFIED INGREDIENT [Suspect]
     Active Substance: UNSPECIFIED INGREDIENT
     Indication: Therapeutic embolisation
     Route: 013
     Dates: start: 20201102, end: 20201102

REACTIONS (2)
  - Sciatica [Not Recovered/Not Resolved]
  - Osteonecrosis [Not Recovered/Not Resolved]

NARRATIVE: CASE EVENT DATE: 20201105
